FAERS Safety Report 4721785-0 (Version None)
Quarter: 2005Q3

REPORT INFORMATION
  Report Type: 
  Country: None (occurrence: None)
  Receive Date: 20050721
  Receipt Date: 20050414
  Transmission Date: 20060218
  Serious: Yes (Hospitalization)
  Sender: FDA-Public Use
  Company Number: US-BRISTOL-MYERS SQUIBB COMPANY-12933552

PATIENT
  Age: 39 Year
  Sex: Female

DRUGS (1)
  1. COUMADIN [Suspect]
     Indication: PULMONARY EMBOLISM
     Dates: start: 20050401, end: 20050405

REACTIONS (2)
  - CONTUSION [None]
  - DRUG HYPERSENSITIVITY [None]
